FAERS Safety Report 20106589 (Version 1)
Quarter: 2021Q4

REPORT INFORMATION
  Report Type: Spontaneous
  Country: US (occurrence: US)
  Receive Date: 20211124
  Receipt Date: 20211124
  Transmission Date: 20220304
  Serious: Yes (Other)
  Sender: FDA-Public Use
  Company Number: US-BRISTOL-MYERS SQUIBB COMPANY-BMS-2021-125874

PATIENT
  Age: 80 Year
  Sex: Male

DRUGS (2)
  1. NIVOLUMAB [Suspect]
     Active Substance: NIVOLUMAB
     Indication: Small cell lung cancer
     Dosage: 3 DOSES
     Route: 065
  2. IPILIMUMAB [Suspect]
     Active Substance: IPILIMUMAB
     Indication: Small cell lung cancer
     Dosage: 3 DOSES
     Route: 065

REACTIONS (3)
  - Interstitial lung disease [Unknown]
  - Chronic obstructive pulmonary disease [Unknown]
  - Intentional product use issue [Unknown]
